FAERS Safety Report 5863522-2 (Version None)
Quarter: 2008Q3

REPORT INFORMATION
  Report Type: 
  Country: None (occurrence: None)
  Receive Date: 20080828
  Receipt Date: 20080822
  Transmission Date: 20090109
  Serious: Yes (Other)
  Sender: FDA-Public Use
  Company Number: JP-BOEHRINGER INGELHEIM GMBH, GERMANY-2008-BP-13226NB

PATIENT
  Age: 78 Year
  Sex: Male

DRUGS (9)
  1. BI-SIFROL TABLETS [Suspect]
     Indication: PARKINSON'S DISEASE
     Route: 048
     Dates: start: 20080126
  2. MADOPAR [Suspect]
     Indication: PARKINSON'S DISEASE
     Route: 048
  3. ASPIRIN [Suspect]
     Indication: CEREBRAL INFARCTION
     Route: 048
  4. AVAPRO [Suspect]
     Indication: HYPERTENSION
     Route: 048
  5. REVINBACE (ENALAPRIL MALEATE) [Concomitant]
     Indication: HYPERTENSION
     Route: 048
  6. AMLODIPINE BESYLATE [Concomitant]
     Indication: HYPERTENSION
     Route: 048
  7. LASIX [Concomitant]
     Indication: POLYURIA
     Route: 048
  8. URALYT-U (POTASSIUM CITRATE_SODIUM CITRATE) [Concomitant]
     Indication: HYPERURICAEMIA
     Route: 048
  9. ANZIEF [Concomitant]
     Indication: HYPERURICAEMIA
     Route: 048

REACTIONS (5)
  - FEELING COLD [None]
  - LIP DISCOLOURATION [None]
  - NEUROLEPTIC MALIGNANT SYNDROME [None]
  - PYREXIA [None]
  - TREMOR [None]
